FAERS Safety Report 8593409-6 (Version None)
Quarter: 2012Q3

REPORT INFORMATION
  Report Type: 
  Country: None (occurrence: None)
  Receive Date: 20120814
  Receipt Date: 20120806
  Transmission Date: 20120928
  Serious: Yes (Death, Hospitalization)
  Sender: FDA-Public Use
  Company Number: JP-JNJFOC-20120706852

PATIENT
  Age: 81 Year
  Sex: Female

DRUGS (6)
  1. CEFEPIME HYDROCHLORIDE [Concomitant]
     Route: 065
     Dates: start: 20111001
  2. REMICADE [Suspect]
     Indication: RHEUMATOID ARTHRITIS
     Route: 042
  3. RHEUMATREX [Suspect]
     Indication: RHEUMATOID ARTHRITIS
     Route: 048
     Dates: start: 20111001
  4. ETANERCEPT [Suspect]
     Indication: PRODUCT USED FOR UNKNOWN INDICATION
     Route: 065
  5. LEVOLEUCOVORIN CALCIUM [Suspect]
     Indication: PRODUCT USED FOR UNKNOWN INDICATION
     Route: 065
     Dates: start: 20111001
  6. ALL OTHER THERAPEUTICS [Concomitant]
     Route: 065
     Dates: start: 20111001

REACTIONS (8)
  - MELAENA [None]
  - SEPSIS [None]
  - INTERSTITIAL LUNG DISEASE [None]
  - ORAL DISORDER [None]
  - DISSEMINATED INTRAVASCULAR COAGULATION [None]
  - CEREBRAL INFARCTION [None]
  - BONE MARROW FAILURE [None]
  - BRONCHOPULMONARY ASPERGILLOSIS [None]
